FAERS Safety Report 7526863-9 (Version None)
Quarter: 2011Q2

REPORT INFORMATION
  Report Type: 
  Country: None (occurrence: None)
  Receive Date: 20110606
  Receipt Date: 20110525
  Transmission Date: 20111010
  Serious: Yes (Death, Hospitalization)
  Sender: FDA-Public Use
  Company Number: PHHY2011US31898

PATIENT
  Sex: Female

DRUGS (1)
  1. AFINITOR [Suspect]
     Indication: RENAL CANCER
     Dosage: 10 MG, QD
     Route: 048
     Dates: start: 20110325

REACTIONS (7)
  - DYSSTASIA [None]
  - RENAL DISORDER [None]
  - DIZZINESS [None]
  - OROPHARYNGEAL PAIN [None]
  - DEATH [None]
  - PAIN [None]
  - NAUSEA [None]
